FAERS Safety Report 11791771 (Version 1)
Quarter: 2015Q4

REPORT INFORMATION
  Report Type: Spontaneous
  Country: CO (occurrence: CO)
  Receive Date: 20151201
  Receipt Date: 20151201
  Transmission Date: 20160305
  Serious: Yes (Death, Other)
  Sender: FDA-Public Use
  Company Number: PHHY2015CO156863

PATIENT
  Age: 52 Year
  Sex: Female

DRUGS (1)
  1. AFINITOR [Suspect]
     Active Substance: EVEROLIMUS
     Indication: BREAST CANCER
     Dosage: 10 MG, UNK
     Route: 048
     Dates: start: 20150515

REACTIONS (4)
  - Death [Fatal]
  - Mouth haemorrhage [Unknown]
  - Metastases to bone [Unknown]
  - Haematemesis [Unknown]

NARRATIVE: CASE EVENT DATE: 20150929
